FAERS Safety Report 25057897 (Version 1)
Quarter: 2025Q1

REPORT INFORMATION
  Report Type: Spontaneous
  Country: US (occurrence: None)
  Receive Date: 20250308
  Receipt Date: 20250308
  Transmission Date: 20250409
  Serious: Yes (Other)
  Sender: FDA-CTU
  Company Number: None

PATIENT
  Age: 50 Year
  Sex: Female
  Weight: 49.5 kg

DRUGS (2)
  1. AMMONIUM LACTATE [Suspect]
     Active Substance: AMMONIUM LACTATE
     Indication: Skin exfoliation
     Dosage: OTHER QUANTITY : 1 THIN LAYER;?FREQUENCY : AT BEDTIME;?
     Route: 061
     Dates: start: 20250303, end: 20250308
  2. VITAMIN D [Concomitant]
     Active Substance: VITAMIN D NOS

REACTIONS (3)
  - Dizziness [None]
  - Condition aggravated [None]
  - Dizziness [None]

NARRATIVE: CASE EVENT DATE: 20250308
